FAERS Safety Report 12857786 (Version 1)
Quarter: 2016Q4

REPORT INFORMATION
  Report Type: Spontaneous
  Country: US (occurrence: US)
  Receive Date: 20161018
  Receipt Date: 20161018
  Transmission Date: 20170207
  Serious: No
  Sender: FDA-Public Use
  Company Number: US-PERRIGO-16US001491

PATIENT
  Age: 35 Year
  Sex: Male
  Weight: 104.31 kg

DRUGS (2)
  1. NICOTINE POLACRILEX [Suspect]
     Active Substance: NICOTINE
     Dosage: 8 TO 12 MG, 4 TO 5 TIMES DAILY
     Route: 002
     Dates: start: 201601
  2. NICOTINE POLACRILEX [Suspect]
     Active Substance: NICOTINE
     Indication: SMOKING CESSATION THERAPY
     Dosage: 4 MG, EVERY1 TO 2 HOURS
     Route: 002
     Dates: start: 201601, end: 201601

REACTIONS (2)
  - Wrong technique in product usage process [Not Recovered/Not Resolved]
  - Drug ineffective [Unknown]

NARRATIVE: CASE EVENT DATE: 201601
